FAERS Safety Report 7780908-X (Version None)
Quarter: 2011Q3

REPORT INFORMATION
  Report Type: 
  Country: None (occurrence: None)
  Receive Date: 20110927
  Receipt Date: 20110920
  Transmission Date: 20111222
  Serious: Yes (Hospitalization)
  Sender: FDA-Public Use
  Company Number: US-ABBOTT-11P-163-0856342-00

PATIENT
  Sex: Female
  Weight: 64.922 kg

DRUGS (10)
  1. AMBIEN CR [Concomitant]
     Indication: SLEEP DISORDER THERAPY
  2. VITAMIN D [Concomitant]
     Indication: VITAMIN SUPPLEMENTATION
  3. NEXIUM [Concomitant]
     Indication: GASTROOESOPHAGEAL REFLUX DISEASE
  4. VITAMIN B COMPLEX CAP [Concomitant]
     Indication: VITAMIN SUPPLEMENTATION
  5. TRAMADOL HCL [Concomitant]
     Indication: PAIN
  6. HUMIRA [Suspect]
     Indication: RHEUMATOID ARTHRITIS
     Dates: start: 20040101
  7. HUMIRA [Suspect]
  8. ARAVA [Concomitant]
     Indication: RHEUMATOID ARTHRITIS
  9. FOLIC ACID [Concomitant]
     Indication: VITAMIN SUPPLEMENTATION
  10. VITAMIN TAB [Concomitant]
     Indication: VITAMIN SUPPLEMENTATION

REACTIONS (5)
  - COLON CANCER [None]
  - UTERINE LEIOMYOMA [None]
  - ENDOMETRIOSIS [None]
  - MENORRHAGIA [None]
  - HORMONE LEVEL ABNORMAL [None]
